FAERS Safety Report 7718526-1 (Version None)
Quarter: 2011Q3

REPORT INFORMATION
  Report Type: 
  Country: None (occurrence: None)
  Receive Date: 20110817
  Receipt Date: 20110516
  Transmission Date: 20111222
  Serious: Yes (Other)
  Sender: FDA-Public Use
  Company Number: 20109357

PATIENT
  Sex: Female

DRUGS (3)
  1. LIORESAL [Suspect]
     Indication: MUSCLE SPASTICITY
     Dosage: DAILY, INTRATHECAL
     Route: 037
  2. FENTANYL [Concomitant]
  3. BUPIVACAINE HCL [Concomitant]

REACTIONS (6)
  - HYPOAESTHESIA [None]
  - MUSCLE SPASMS [None]
  - ASTHENIA [None]
  - LETHARGY [None]
  - HYPOKINESIA [None]
  - PAIN [None]
